FAERS Safety Report 8489595-9 (Version None)
Quarter: 2012Q3

REPORT INFORMATION
  Report Type: 
  Country: None (occurrence: None)
  Receive Date: 20120705
  Receipt Date: 20120626
  Transmission Date: 20120928
  Serious: Yes (Disabling)
  Sender: FDA-Public Use
  Company Number: JP-JNJFOC-20120700427

PATIENT
  Sex: Female
  Weight: 43 kg

DRUGS (12)
  1. ANPEC (MORPHINE HYDROCHLORIDE) [Concomitant]
     Route: 065
     Dates: start: 20090724, end: 20090901
  2. DOXORUBICIN HCL [Suspect]
     Indication: OVARIAN CANCER RECURRENT
     Dosage: CYCLE 3
     Route: 042
     Dates: start: 20090724, end: 20090724
  3. ZOFRAN [Concomitant]
     Route: 048
     Dates: start: 20090724, end: 20090813
  4. LOPERAMIDE HYDROCHLORIDE [Concomitant]
     Indication: DIARRHOEA
     Route: 048
     Dates: start: 20090724, end: 20090817
  5. MORPHINE [Concomitant]
     Indication: PROPHYLAXIS
     Route: 048
  6. PHYSIO [Concomitant]
     Indication: PROPHYLAXIS
     Route: 042
     Dates: start: 20090625, end: 20090625
  7. ACETAMINOPHEN [Concomitant]
     Route: 048
     Dates: start: 20090724, end: 20090901
  8. DOXORUBICIN HCL [Suspect]
     Dosage: CYCLE 2
     Route: 042
     Dates: start: 20090625, end: 20090625
  9. DOXORUBICIN HCL [Suspect]
     Dosage: CYCLE 1
     Route: 042
     Dates: start: 20090528, end: 20090528
  10. VITAMEDIN [Concomitant]
     Indication: PROPHYLAXIS
     Route: 042
     Dates: start: 20090625, end: 20090625
  11. MOBIC [Concomitant]
     Route: 048
     Dates: start: 20090724, end: 20090901
  12. FENTANYL-100 [Concomitant]
     Route: 062
     Dates: start: 20090724, end: 20090901

REACTIONS (1)
  - ANURIA [None]
